FAERS Safety Report 4815492-3 (Version None)
Quarter: 2005Q4

REPORT INFORMATION
  Report Type: 
  Country: None (occurrence: None)
  Receive Date: 20051027
  Receipt Date: 20051026
  Transmission Date: 20060501
  Serious: Yes (Hospitalization)
  Sender: FDA-Public Use
  Company Number: URSO-2005-034

PATIENT
  Age: 28 Year
  Sex: Male

DRUGS (2)
  1. URSO (URSODESOXYCHOLIC ACID) [Suspect]
     Indication: CHOLANGITIS SCLEROSING
     Dosage: 600 MG PO
     Route: 048
     Dates: start: 20011101
  2. FERROUS CITRATE [Concomitant]

REACTIONS (7)
  - ANAEMIA [None]
  - ANTINEUTROPHIL CYTOPLASMIC ANTIBODY POSITIVE [None]
  - CELL MARKER INCREASED [None]
  - HEPATIC ENZYME ABNORMAL [None]
  - INTERSTITIAL LUNG DISEASE [None]
  - LIVER DISORDER [None]
  - PULMONARY FIBROSIS [None]
